FAERS Safety Report 9106960 (Version 2)
Quarter: 2013Q1

REPORT INFORMATION
  Report Type: Spontaneous
  Country: ES (occurrence: ES)
  Receive Date: 20130221
  Receipt Date: 20130228
  Transmission Date: 20140127
  Serious: Yes (Death, Hospitalization)
  Sender: FDA-Public Use
  Company Number: ES-GENZYME-THYM-1003650

PATIENT
  Age: 44 Year
  Sex: Male

DRUGS (5)
  1. THYMOGLOBULINE [Suspect]
     Indication: BONE MARROW CONDITIONING REGIMEN
     Dosage: UNKX QD
     Route: 042
     Dates: start: 201205, end: 201205
  2. FLUDARA [Suspect]
     Indication: BONE MARROW CONDITIONING REGIMEN
     Dosage: UNKX QD
     Route: 042
     Dates: start: 201205, end: 201205
  3. CYCLOPHOSPHAMIDE [Concomitant]
     Indication: BONE MARROW CONDITIONING REGIMEN
     Dosage: UNKX QD
     Route: 042
     Dates: start: 201205, end: 201205
  4. CICLOSPORIN [Concomitant]
     Indication: PROPHYLAXIS AGAINST TRANSPLANT REJECTION
     Dosage: UNK
     Route: 048
     Dates: start: 201205
  5. METHOTREXATE [Concomitant]
     Indication: PROPHYLAXIS AGAINST TRANSPLANT REJECTION
     Dosage: UNK
     Route: 048
     Dates: start: 201205

REACTIONS (4)
  - Bone marrow failure [Fatal]
  - Multi-organ failure [Fatal]
  - Pneumonia [Fatal]
  - Epstein-Barr virus infection [Recovered/Resolved]
